FAERS Safety Report 14995776 (Version 1)
Quarter: 2018Q2

REPORT INFORMATION
  Report Type: Spontaneous
  Country: US (occurrence: US)
  Receive Date: 20180521
  Receipt Date: 20180521
  Transmission Date: 20180711
  Serious: Yes (Hospitalization)
  Sender: FDA-Public Use
  Company Number: None

PATIENT
  Age: 58 Year
  Sex: Male
  Weight: 118 kg

DRUGS (7)
  1. DOXYCYCLINE. [Suspect]
     Active Substance: DOXYCYCLINE
     Indication: RASH
     Route: 048
     Dates: start: 20180301, end: 20180302
  2. LOSARTAN. [Concomitant]
     Active Substance: LOSARTAN
     Dates: start: 20171130
  3. AZELASTINE NASAL SPRAY [Concomitant]
     Active Substance: AZELASTINE
     Dates: start: 20161114
  4. OMEGA-3 FATTY ACIDS-VITAMIN E [Concomitant]
     Dates: start: 20100827
  5. FLUTICASONE NASAL SPRAY [Concomitant]
     Active Substance: FLUTICASONE
     Dates: start: 20180301
  6. ARGININE 500MG DAILY [Concomitant]
     Dates: start: 20151116
  7. ASPIRIN. [Concomitant]
     Active Substance: ASPIRIN
     Dates: start: 20130208

REACTIONS (10)
  - Skin abrasion [None]
  - Arthralgia [None]
  - Urticaria [None]
  - Dizziness [None]
  - Joint swelling [None]
  - Headache [None]
  - Oropharyngeal pain [None]
  - Productive cough [None]
  - Dyspnoea [None]
  - Rash erythematous [None]

NARRATIVE: CASE EVENT DATE: 20180302
